FAERS Safety Report 18331062 (Version 1)
Quarter: 2020Q3

REPORT INFORMATION
  Report Type: Spontaneous
  Country: US (occurrence: US)
  Receive Date: 20200930
  Receipt Date: 20200930
  Transmission Date: 20201103
  Serious: Yes (Hospitalization, Other)
  Sender: FDA-Public Use
  Company Number: US-EPIC PHARMA LLC-2020EPC00285

PATIENT
  Sex: Male
  Weight: 56.69 kg

DRUGS (1)
  1. OXYMORPHONE [Suspect]
     Active Substance: OXYMORPHONE
     Indication: FIBROMYALGIA
     Dosage: 1 PILL TAKEN 3X/DAY
     Route: 048
     Dates: end: 2010

REACTIONS (18)
  - Feeling cold [Unknown]
  - Hypertension [Not Recovered/Not Resolved]
  - Abdominal discomfort [Not Recovered/Not Resolved]
  - Hyperhidrosis [Not Recovered/Not Resolved]
  - Vomiting [Unknown]
  - Drug ineffective [Recovered/Resolved]
  - Spinal operation [Unknown]
  - Nervousness [Not Recovered/Not Resolved]
  - Labelled drug-food interaction medication error [Recovered/Resolved]
  - Hospitalisation [Recovered/Resolved]
  - Tremor [Not Recovered/Not Resolved]
  - Disturbance in attention [Unknown]
  - Unevaluable event [Not Recovered/Not Resolved]
  - Drug dependence [Recovered/Resolved]
  - Weight decreased [Not Recovered/Not Resolved]
  - Alcohol abuse [Not Recovered/Not Resolved]
  - Emergency care [Recovered/Resolved]
  - Withdrawal syndrome [Recovering/Resolving]

NARRATIVE: CASE EVENT DATE: 2010
